FAERS Safety Report 19956764 (Version 2)
Quarter: 2021Q4

REPORT INFORMATION
  Report Type: Spontaneous
  Country: LB (occurrence: LB)
  Receive Date: 20211014
  Receipt Date: 20211025
  Transmission Date: 20220304
  Serious: Yes (Other)
  Sender: FDA-Public Use
  Company Number: LB-BOEHRINGERINGELHEIM-2021-BI-131697

PATIENT
  Age: 89 Year
  Sex: Male

DRUGS (1)
  1. PRADAXA [Suspect]
     Active Substance: DABIGATRAN ETEXILATE MESYLATE
     Indication: Atrial fibrillation
     Dosage: PATIENT FOLLOWS HCP GUIDANCE
     Route: 065
     Dates: end: 20211008

REACTIONS (3)
  - Fall [Recovered/Resolved]
  - Subdural haematoma [Recovered/Resolved]
  - Injury [Recovered/Resolved]

NARRATIVE: CASE EVENT DATE: 20211008
